FAERS Safety Report 4915637-0 (Version None)
Quarter: 2006Q1

REPORT INFORMATION
  Report Type: 
  Country: None (occurrence: None)
  Receive Date: 20060217
  Receipt Date: 20041007
  Transmission Date: 20060701
  Serious: Yes (Disabling)
  Sender: FDA-Public Use
  Company Number: US-MERCK-0410USA01025

PATIENT
  Age: 63 Year
  Sex: Female
  Weight: 114 kg

DRUGS (13)
  1. VIOXX [Suspect]
     Indication: OSTEOARTHRITIS
     Route: 048
     Dates: start: 20000414, end: 20010423
  2. VIOXX [Suspect]
     Indication: ARTHRALGIA
     Route: 048
     Dates: start: 20000414, end: 20010423
  3. GLUCOPHAGE [Concomitant]
     Indication: DIABETES MELLITUS
     Route: 065
  4. REGLAN [Concomitant]
     Indication: GASTROOESOPHAGEAL REFLUX DISEASE
     Route: 065
  5. ZOLOFT [Concomitant]
     Indication: DEPRESSION
     Route: 065
  6. HUMULIN N [Concomitant]
     Indication: DIABETES MELLITUS
     Route: 065
  7. ACIPHEX [Concomitant]
     Route: 065
  8. PROVENTIL [Concomitant]
     Route: 065
  9. LASIX [Concomitant]
     Indication: OEDEMA PERIPHERAL
     Route: 065
     Dates: start: 20000101
  10. LEVOXYL [Concomitant]
     Indication: HYPOTHYROIDISM
     Route: 065
  11. INDERAL [Concomitant]
     Indication: HYPERTENSION
     Route: 065
     Dates: start: 19800101
  12. PRAVACHOL [Concomitant]
     Indication: HYPERLIPIDAEMIA
     Route: 065
     Dates: start: 19900101, end: 20050801
  13. PROPRANOLOL HYDROCHLORIDE [Concomitant]
     Indication: HYPERTENSION
     Route: 065

REACTIONS (18)
  - ARTHRALGIA [None]
  - ASTHENIA [None]
  - BACK PAIN [None]
  - CARPAL TUNNEL SYNDROME [None]
  - CEREBROVASCULAR ACCIDENT [None]
  - CHEST PAIN [None]
  - CONTUSION [None]
  - DIZZINESS [None]
  - DYSPNOEA [None]
  - FATIGUE [None]
  - FLANK PAIN [None]
  - HYPOGLYCAEMIA [None]
  - MYALGIA [None]
  - NAUSEA [None]
  - PARAESTHESIA [None]
  - REGURGITATION OF FOOD [None]
  - RHINITIS ALLERGIC [None]
  - STRESS [None]
